FAERS Safety Report 18722503 (Version 4)
Quarter: 2021Q1

REPORT INFORMATION
  Report Type: Spontaneous
  Country: PT (occurrence: PT)
  Receive Date: 20210111
  Receipt Date: 20210215
  Transmission Date: 20210419
  Serious: Yes (Other)
  Sender: FDA-Public Use
  Company Number: PT-AUROBINDO-AUR-APL-2021-001078

PATIENT
  Age: 70 Year
  Sex: Male

DRUGS (9)
  1. LEVOTHYROXINE. [Concomitant]
     Active Substance: LEVOTHYROXINE
     Indication: HYPOTHYROIDISM
     Dosage: UNK
     Route: 065
  2. GENTAMICIN. [Suspect]
     Active Substance: GENTAMICIN
     Indication: BRAIN ABSCESS
  3. LINEZOLID. [Suspect]
     Active Substance: LINEZOLID
     Indication: RHODOCOCCUS INFECTION
     Dosage: UNK
     Route: 042
     Dates: start: 201804, end: 201807
  4. GENTAMICIN. [Suspect]
     Active Substance: GENTAMICIN
     Indication: RHODOCOCCUS INFECTION
     Dosage: UNK
     Route: 042
     Dates: start: 201804, end: 201907
  5. ERTAPENEM. [Concomitant]
     Active Substance: ERTAPENEM SODIUM
     Indication: RHODOCOCCUS INFECTION
     Dosage: UNK
     Route: 042
     Dates: start: 201804
  6. ERTAPENEM. [Concomitant]
     Active Substance: ERTAPENEM SODIUM
     Indication: BRAIN ABSCESS
  7. ENTECAVIR. [Concomitant]
     Active Substance: ENTECAVIR
     Indication: CHRONIC HEPATITIS B
     Dosage: UNK
     Route: 065
  8. LINEZOLID. [Suspect]
     Active Substance: LINEZOLID
     Indication: BRAIN ABSCESS
  9. CLARITHROMYCIN. [Concomitant]
     Active Substance: CLARITHROMYCIN
     Indication: RHODOCOCCUS INFECTION
     Dosage: UNK
     Route: 065
     Dates: start: 201807

REACTIONS (4)
  - Nephropathy toxic [Unknown]
  - Myelosuppression [Unknown]
  - Ototoxicity [Unknown]
  - Product use issue [Recovered/Resolved]

NARRATIVE: CASE EVENT DATE: 201807
